FAERS Safety Report 5479958-8 (Version None)
Quarter: 2007Q4

REPORT INFORMATION
  Report Type: 
  Country: None (occurrence: None)
  Receive Date: 20071008
  Receipt Date: 20070926
  Transmission Date: 20080405
  Serious: Yes (Hospitalization)
  Sender: FDA-Public Use
  Company Number: US-GENENTECH-248491

PATIENT
  Age: 45 Year
  Sex: Male

DRUGS (4)
  1. AVASTIN [Suspect]
     Indication: COLON CANCER METASTATIC
     Dosage: 5 MG/KG, UNK
  2. FLUOROURACIL [Concomitant]
     Indication: COLON CANCER METASTATIC
  3. OXALIPLATIN [Concomitant]
     Indication: COLON CANCER METASTATIC
  4. LEUCOVORIN [Concomitant]
     Indication: COLON CANCER METASTATIC

REACTIONS (1)
  - ACUTE ABDOMEN [None]
